FAERS Safety Report 7086992-3 (Version None)
Quarter: 2010Q4

REPORT INFORMATION
  Report Type: 
  Country: None (occurrence: None)
  Receive Date: 20101106
  Receipt Date: 20101022
  Transmission Date: 20110411
  Serious: No
  Sender: FDA-Public Use
  Company Number: US-WYE-H18325610

PATIENT
  Sex: Female
  Weight: 113.5 kg

DRUGS (6)
  1. PREMARIN [Suspect]
     Indication: VULVOVAGINAL DRYNESS
     Route: 067
     Dates: start: 20100706, end: 20100101
  2. PREMARIN [Suspect]
     Dosage: UNKNOWN DOSE 2-3 TIMES A WEEK
     Route: 067
     Dates: start: 20100101
  3. NAPROSYN [Concomitant]
  4. CELEBREX [Concomitant]
     Indication: OSTEOARTHRITIS
     Dosage: 200MG ONCE OR TWICE DAILY AS NEEDED
     Route: 048
  5. CELEBREX [Concomitant]
     Indication: RHEUMATOID ARTHRITIS
  6. SYNTHROID [Concomitant]

REACTIONS (1)
  - CYSTITIS [None]
